FAERS Safety Report 7270395-2 (Version None)
Quarter: 2011Q1

REPORT INFORMATION
  Report Type: 
  Country: None (occurrence: None)
  Receive Date: 20110202
  Receipt Date: 20110124
  Transmission Date: 20110831
  Serious: Yes (Other)
  Sender: FDA-Public Use
  Company Number: US-ELI_LILLY_AND_COMPANY-US201010003070

PATIENT
  Sex: Male
  Weight: 98.866 kg

DRUGS (9)
  1. SIMVASTATIN [Concomitant]
  2. NITRO                              /00003201/ [Concomitant]
  3. INTEGRILIN [Concomitant]
     Dosage: UNK, UNKNOWN
     Route: 065
  4. EFFIENT [Suspect]
     Dosage: 10 MG, DAILY (1/D)
  5. MORPHINE [Concomitant]
  6. EFFIENT [Suspect]
     Indication: ACUTE MYOCARDIAL INFARCTION
     Dosage: 60 MG, INITIAL LOADING DOSE
     Route: 065
     Dates: start: 20101003
  7. HEPARIN [Concomitant]
  8. ASPIRIN [Concomitant]
  9. METOPROLOL [Concomitant]

REACTIONS (4)
  - CORONARY ARTERY OCCLUSION [None]
  - THROMBOSIS IN DEVICE [None]
  - CHEST PAIN [None]
  - ELECTROCARDIOGRAM ST SEGMENT ELEVATION [None]
